FAERS Safety Report 9943318 (Version 1)
Quarter: 2014Q1

REPORT INFORMATION
  Report Type: Spontaneous
  Country: NL (occurrence: NL)
  Receive Date: 20140303
  Receipt Date: 20140303
  Transmission Date: 20141002
  Serious: Yes (Hospitalization)
  Sender: FDA-Public Use
  Company Number: PHHY2014NL021783

PATIENT
  Age: 80 Year
  Sex: Female
  Weight: 65 kg

DRUGS (6)
  1. MEMANTINE HYDROCHLORIDE [Suspect]
     Indication: DEMENTIA ALZHEIMER^S TYPE
     Dosage: 5 MG, QD
     Route: 048
     Dates: start: 20140115, end: 20140120
  2. HALOPERIDOL [Interacting]
     Indication: DELIRIUM
     Dosage: 0.5 DF, QD
     Route: 048
     Dates: start: 20140109, end: 20140120
  3. MOVICOLON [Concomitant]
     Route: 048
  4. ACETYLSALICYLZUUR [Concomitant]
     Dosage: 80 MG, QD
     Route: 048
     Dates: start: 20140114
  5. PARACETAMOL [Concomitant]
     Dosage: 500 MG, UNK
     Route: 048
  6. FRAXIPARINE [Concomitant]
     Dosage: 0.3 ML, QD
     Route: 058

REACTIONS (2)
  - Orthostatic hypotension [Recovered/Resolved]
  - Drug interaction [Recovered/Resolved]
